FAERS Safety Report 13180757 (Version 1)
Quarter: 2017Q1

REPORT INFORMATION
  Report Type: Spontaneous
  Country: US (occurrence: US)
  Receive Date: 20170202
  Receipt Date: 20170202
  Transmission Date: 20170428
  Serious: No
  Sender: FDA-Public Use
  Company Number: US-SMITH AND NEPHEW, INC-2016SMT00703

PATIENT
  Sex: Female
  Weight: 127.44 kg

DRUGS (6)
  1. INSULIN [Concomitant]
     Active Substance: INSULIN NOS
  2. NEURONTIN [Concomitant]
     Active Substance: GABAPENTIN
  3. METFORMIN [Concomitant]
     Active Substance: METFORMIN HYDROCHLORIDE
  4. GLIPERIDE [Concomitant]
     Active Substance: GLIMEPIRIDE
  5. REGRANEX [Suspect]
     Active Substance: BECAPLERMIN
     Indication: THERMAL BURN
     Dosage: UNK UNK, 1X/WEEK
     Route: 061
     Dates: start: 2016
  6. CRAZY PILL [Concomitant]

REACTIONS (3)
  - Blister [Recovering/Resolving]
  - Inappropriate schedule of drug administration [Not Recovered/Not Resolved]
  - Off label use [Not Recovered/Not Resolved]
